FAERS Safety Report 16116807 (Version 1)
Quarter: 2019Q1

REPORT INFORMATION
  Report Type: Spontaneous
  Country: US (occurrence: US)
  Receive Date: 20190221
  Receipt Date: 20190221
  Transmission Date: 20190418
  Serious: Yes (Hospitalization)
  Sender: FDA-Public Use
  Company Number: None

PATIENT
  Age: 71 Year
  Sex: Female
  Weight: 57.61 kg

DRUGS (9)
  1. LEVOTHYROXINE. [Concomitant]
     Active Substance: LEVOTHYROXINE
  2. WOMENS PLUS 50 MULTIFITAMIN [Concomitant]
  3. OSCAL PLUS D [Concomitant]
  4. BIOTIN [Concomitant]
     Active Substance: BIOTIN
  5. LOW DOSE ASA [Concomitant]
  6. LISINOPRYL/HCTZ [Concomitant]
  7. VIT D-3 [Concomitant]
  8. VITAMIN D3 [Suspect]
     Active Substance: CHOLECALCIFEROL
  9. RECLAST [Suspect]
     Active Substance: ZOLEDRONIC ACID
     Indication: OSTEOPOROSIS
     Dosage: ?          OTHER STRENGTH:5MG PER 100 ML;QUANTITY:1 IV INJECTION;OTHER FREQUENCY:1 YEAR;OTHER ROUTE:INTRAVENOUS?
     Route: 042
     Dates: start: 20121203, end: 20181204

REACTIONS (4)
  - Weight bearing difficulty [None]
  - Muscle strain [None]
  - Pain in extremity [None]
  - Femur fracture [None]

NARRATIVE: CASE EVENT DATE: 20180701
